FAERS Safety Report 13647301 (Version 1)
Quarter: 2017Q2

REPORT INFORMATION
  Report Type: Spontaneous
  Country: US (occurrence: US)
  Receive Date: 20170613
  Receipt Date: 20170613
  Transmission Date: 20170830
  Serious: Yes (Hospitalization, Other)
  Sender: FDA-Public Use
  Company Number: None

PATIENT
  Age: 53 Year
  Sex: Female

DRUGS (3)
  1. XELODA [Concomitant]
     Active Substance: CAPECITABINE
  2. TRASTUZUMAB [Suspect]
     Active Substance: TRASTUZUMAB
     Indication: METASTASES TO LIVER
     Dosage: 2 MINUTE
     Route: 041
  3. TRASTUZUMAB [Suspect]
     Active Substance: TRASTUZUMAB
     Indication: OSTEOLYSIS
     Dosage: 2 MINUTE
     Route: 041

REACTIONS (7)
  - Chills [None]
  - Dyspnoea [None]
  - Hypertension [None]
  - Cyanosis [None]
  - Panic attack [None]
  - Pyrexia [None]
  - Palpitations [None]

NARRATIVE: CASE EVENT DATE: 20141001
